FAERS Safety Report 5583177-4 (Version None)
Quarter: 2008Q1

REPORT INFORMATION
  Report Type: 
  Country: None (occurrence: None)
  Receive Date: 20080103
  Receipt Date: 20080103
  Transmission Date: 20080703
  Serious: Yes (Hospitalization)
  Sender: FDA-Public Use
  Company Number: None

PATIENT
  Sex: Male

DRUGS (7)
  1. CIPROFLOXACIN [Suspect]
     Indication: CHILLS
     Dates: start: 20070922, end: 20070922
  2. CIPROFLOXACIN [Suspect]
     Indication: PYREXIA
     Dates: start: 20070922, end: 20070922
  3. CIPROFLOXACIN [Suspect]
     Indication: SPUTUM DISCOLOURED
     Dates: start: 20070922, end: 20070922
  4. AMLODIPINE [Concomitant]
  5. GLUCOTROL [Concomitant]
  6. ZYRTEC [Concomitant]
  7. ASPIRIN [Concomitant]

REACTIONS (1)
  - HYPOGLYCAEMIA [None]
